FAERS Safety Report 16904119 (Version 1)
Quarter: 2019Q4

REPORT INFORMATION
  Report Type: Spontaneous
  Country: US (occurrence: US)
  Receive Date: 20190819
  Receipt Date: 20190819
  Transmission Date: 20200122
  Serious: No
  Sender: FDA-Public Use
  Company Number: None

PATIENT
  Age: 52 Year
  Sex: Female

DRUGS (1)
  1. PROMACTA [Suspect]
     Active Substance: ELTROMBOPAG OLAMINE
     Dates: start: 20190817

REACTIONS (3)
  - Inappropriate schedule of product administration [None]
  - Confusional state [None]
  - Incorrect dose administered [None]

NARRATIVE: CASE EVENT DATE: 20190817
